FAERS Safety Report 22080805 (Version 1)
Quarter: 2023Q1

REPORT INFORMATION
  Report Type: Report from Study
  Country: US (occurrence: US)
  Receive Date: 20230309
  Receipt Date: 20230309
  Transmission Date: 20230418
  Serious: Yes (Death)
  Sender: FDA-Public Use
  Company Number: US-PARATEK PHARMACEUTICALS, INC.-2023PTK00078

PATIENT
  Sex: Female

DRUGS (12)
  1. NUZYRA [Suspect]
     Active Substance: OMADACYCLINE
     Dosage: 300 MG, 1X/DAY
     Route: 048
     Dates: start: 20221207
  2. OXYCODONE [Concomitant]
     Active Substance: OXYCODONE
  3. FOLIC ACID [Concomitant]
     Active Substance: FOLIC ACID
  4. DULOXETINE [Concomitant]
     Active Substance: DULOXETINE
  5. MYRBETRIQ [Concomitant]
     Active Substance: MIRABEGRON
  6. LEFLUNOMIDE [Concomitant]
     Active Substance: LEFLUNOMIDE
  7. ONDANSETRON [Concomitant]
     Active Substance: ONDANSETRON
  8. METOPROLOL SUCCINATE [Concomitant]
     Active Substance: METOPROLOL SUCCINATE
  9. ELIQUIS [Concomitant]
     Active Substance: APIXABAN
  10. SULFASALAZINE [Concomitant]
     Active Substance: SULFASALAZINE
  11. HYDROCODONE BITARTRATE AND ACETAMINOPHEN [Concomitant]
     Active Substance: ACETAMINOPHEN\HYDROCODONE BITARTRATE
  12. NYSTATIN [Concomitant]
     Active Substance: NYSTATIN

REACTIONS (1)
  - Death [Fatal]
